FAERS Safety Report 14553247 (Version 1)
Quarter: 2018Q1

REPORT INFORMATION
  Report Type: Spontaneous
  Country: US (occurrence: US)
  Receive Date: 20180211
  Receipt Date: 20180211
  Transmission Date: 20180509
  Serious: Yes (Hospitalization, Disabling)
  Sender: FDA-Public Use
  Company Number: None

PATIENT
  Sex: Male
  Weight: 99 kg

DRUGS (3)
  1. WELLBUTRIN [Concomitant]
     Active Substance: BUPROPION HYDROCHLORIDE
  2. KRATOM [Suspect]
     Active Substance: MITRAGYNINE\HERBALS
     Indication: PAIN
     Dosage: ?          QUANTITY:1 TABLET(S);OTHER FREQUENCY:DAILY;?
     Route: 048
     Dates: start: 20171003, end: 20180211
  3. LEXAPRO [Concomitant]
     Active Substance: ESCITALOPRAM OXALATE

REACTIONS (5)
  - Pain [None]
  - Economic problem [None]
  - Drug intolerance [None]
  - Withdrawal syndrome [None]
  - Marital problem [None]

NARRATIVE: CASE EVENT DATE: 20171003
